FAERS Safety Report 7650629-2 (Version None)
Quarter: 2011Q3

REPORT INFORMATION
  Report Type: 
  Country: None (occurrence: None)
  Receive Date: 20110802
  Receipt Date: 20110722
  Transmission Date: 20111222
  Serious: Yes (Hospitalization, Disabling, Other)
  Sender: FDA-Public Use
  Company Number: JP-JNJFOC-20110706138

PATIENT
  Sex: Female
  Weight: 42 kg

DRUGS (10)
  1. WARFARIN SODIUM [Interacting]
     Dosage: 1 MG FOR 2 DAYS
     Route: 048
     Dates: start: 20110714, end: 20110701
  2. WARFARIN SODIUM [Interacting]
     Indication: PRODUCT USED FOR UNKNOWN INDICATION
     Route: 048
     Dates: end: 20110711
  3. DIGOXIN [Concomitant]
     Route: 048
  4. CARVEDILOL [Concomitant]
     Route: 048
  5. RABEPRAZOLE SODIUM [Concomitant]
     Route: 048
  6. LOSARTAN POTASSIUM AND HYDROCHLOROTHIAZIDE [Concomitant]
     Route: 048
  7. AMOBAN [Concomitant]
     Route: 048
  8. MICONAZOLE [Suspect]
     Route: 049
  9. MICONAZOLE [Suspect]
     Indication: ORAL CANDIDIASIS
     Route: 049
     Dates: start: 20110618, end: 20110707
  10. LEVOFLOXACIN [Concomitant]
     Indication: MALAISE
     Route: 048
     Dates: start: 20110601

REACTIONS (3)
  - HAEMATURIA [None]
  - INTERNATIONAL NORMALISED RATIO INCREASED [None]
  - DRUG INTERACTION [None]
